FAERS Safety Report 8083439 (Version 5)
Quarter: 2012Q4

REPORT INFORMATION
  Report Type: 
  Country: US (occurrence: US)
  Receive Date: 20110810
  Receipt Date: 20121204
  Transmission Date: 20130627
  Serious: Yes (Disabling)
  Sender: FDA-Public Use
  Company Number: US-PFIZER INC-2011179948

PATIENT
  Age: 81 Year
  Sex: Female
  Weight: 67.12 kg

DRUGS (16)
  1. TIKOSYN [Suspect]
     Indication: ATRIAL FIBRILLATION
     Dosage: 250 ug, 2x/day
     Route: 048
     Dates: start: 20110619
  2. ASACOL [Suspect]
     Dosage: 800 mg, 1x/day
     Route: 048
  3. AMLODIPINE [Concomitant]
     Indication: POSTOPERATIVE CARE
     Dosage: 5 mg, 2x/day
  4. AMLODIPINE [Concomitant]
     Indication: BLOOD PRESSURE ABNORMAL
  5. AMLODIPINE BESILATE [Concomitant]
     Dosage: 5 mg, 2x/day
     Route: 048
  6. ASPIRIN [Concomitant]
     Dosage: 325 mg, 1x/day
     Route: 048
  7. GARLIC [Concomitant]
     Dosage: (1 po qd)
     Route: 048
  8. FISH OIL [Concomitant]
     Dosage: 1000 mg, 3x/day
     Route: 048
  9. VITAMIN E [Concomitant]
     Dosage: 400 IU, 1x/day
  10. VITAMIN D [Concomitant]
     Dosage: 1000 IU, 1x/day
  11. VITAMIN B12 [Concomitant]
     Dosage: (2500 1 po qd)
     Route: 048
  12. VITAMIN B6 [Concomitant]
     Dosage: 100 mg, 1x/day
     Route: 048
  13. OS-CAL D [Concomitant]
     Dosage: 500-500 Mg-Unit 2 by mouth every day
     Route: 048
  14. METOPROLOL TARTRATE [Concomitant]
     Dosage: 25 mg, 1x/day (50 mg, 1/2 tab po qd)
     Route: 048
  15. MAGNESIUM OXIDE [Concomitant]
     Dosage: 400 mg, 2x/day
     Route: 048
  16. VITAMIN C [Concomitant]
     Dosage: 500 mg, 1x/day
     Route: 048

REACTIONS (2)
  - Tremor [Not Recovered/Not Resolved]
  - Hearing impaired [Not Recovered/Not Resolved]
